FAERS Safety Report 9891382 (Version 1)
Quarter: 2014Q1

REPORT INFORMATION
  Report Type: Spontaneous
  Country: US (occurrence: US)
  Receive Date: 20140212
  Receipt Date: 20140212
  Transmission Date: 20141002
  Serious: No
  Sender: FDA-Public Use
  Company Number: US-PFIZER INC-2014035498

PATIENT
  Age: 66 Year
  Sex: Female
  Weight: 74.83 kg

DRUGS (2)
  1. SUTENT [Suspect]
     Dosage: 50 MG, DAILY (28 DAYS ON AND 14 DAYS OFF)
     Dates: start: 201311
  2. NAUZENE [Concomitant]
     Dosage: UNK

REACTIONS (7)
  - Vaginal haemorrhage [Recovered/Resolved]
  - Dysgeusia [Unknown]
  - Fatigue [Unknown]
  - Blood pressure increased [Unknown]
  - Platelet count decreased [Unknown]
  - Nausea [Unknown]
  - Dyspepsia [Unknown]
